FAERS Safety Report 5171287-5 (Version None)
Quarter: 2006Q4

REPORT INFORMATION
  Report Type: 
  Country: None (occurrence: None)
  Receive Date: 20061213
  Receipt Date: 20050113
  Transmission Date: 20070319
  Serious: Yes (Other)
  Sender: FDA-Public Use
  Company Number: US-AMGEN-US107413

PATIENT
  Sex: Female

DRUGS (5)
  1. ENBREL [Suspect]
     Indication: RHEUMATOID ARTHRITIS
     Dates: start: 20030101
  2. ACTIGALL [Concomitant]
     Route: 065
  3. SYNTHROID [Concomitant]
     Route: 065
  4. DIOVAN HCT [Concomitant]
     Route: 065
  5. BEXTRA [Concomitant]
     Route: 065
     Dates: end: 20041001

REACTIONS (2)
  - ANAEMIA OF CHRONIC DISEASE [None]
  - LYMPHOMA [None]
